FAERS Safety Report 16164400 (Version 2)
Quarter: 2019Q2

REPORT INFORMATION
  Report Type: Report from Study
  Country: JP (occurrence: JP)
  Receive Date: 20190405
  Receipt Date: 20190412
  Transmission Date: 20190711
  Serious: Yes (Hospitalization)
  Sender: FDA-Public Use
  Company Number: JP-ELI_LILLY_AND_COMPANY-JP201903014912

PATIENT
  Age: 75 Year
  Sex: Male
  Weight: 54 kg

DRUGS (7)
  1. GIMERACIL;OTERACIL POTASSIUM;TEGAFUR [Concomitant]
     Active Substance: GIMERACIL\OTERACIL\TEGAFUR
     Indication: GASTRIC CANCER
     Dosage: 100 MG, OTHER, TWICE DAILY FOR DAYS 1 THROUGH 28 FOLLOWED BY 14 DAYS REST IN EVERY 42-DAY-CYCLE
     Route: 041
     Dates: start: 20190124, end: 20190325
  2. GASMOTIN [Concomitant]
     Active Substance: MOSAPRIDE CITRATE
     Indication: GASTROINTESTINAL HYPOMOTILITY
     Dosage: 15 MG, TID
     Route: 048
     Dates: start: 20190124
  3. LIXIANA OD [Concomitant]
     Active Substance: EDOXABAN TOSYLATE
     Indication: ATRIAL FIBRILLATION
     Dosage: 30 MG, DAILY
     Route: 048
     Dates: start: 20190124
  4. DAIKENCHUTO [Concomitant]
     Active Substance: HERBALS
     Indication: GASTROINTESTINAL HYPOMOTILITY
     Dosage: UNK UNK, BID
     Route: 048
     Dates: start: 20190124
  5. BISOPROLOL FUMARATE. [Concomitant]
     Active Substance: BISOPROLOL FUMARATE
     Indication: ATRIAL FIBRILLATION
     Dosage: 2.5 MG, DAILY
     Route: 048
     Dates: start: 20190124
  6. LAGNOS [Concomitant]
     Indication: CONSTIPATION
     Dosage: 32.1 G, BID
     Route: 048
     Dates: start: 20190124
  7. RAMUCIRUMAB [Suspect]
     Active Substance: RAMUCIRUMAB
     Indication: GASTRIC CANCER
     Dosage: 450 MG, CYCLICAL
     Route: 041
     Dates: start: 20190124, end: 20190314

REACTIONS (3)
  - Malaise [Recovered/Resolved]
  - Decreased appetite [Recovered/Resolved]
  - Pyrexia [Recovered/Resolved]

NARRATIVE: CASE EVENT DATE: 20190326
